FAERS Safety Report 9963342 (Version 1)
Quarter: 2014Q1

REPORT INFORMATION
  Report Type: Report from Study
  Country: US (occurrence: US)
  Receive Date: 20140305
  Receipt Date: 20140305
  Transmission Date: 20141002
  Serious: No
  Sender: FDA-Public Use
  Company Number: US-ABBVIE-13P-163-1119467-00

PATIENT
  Age: 70 Year
  Sex: Male

DRUGS (16)
  1. HUMIRA [Suspect]
     Indication: PSORIASIS
     Dates: start: 20130604
  2. ASPIRIN [Concomitant]
     Indication: CARDIAC DISORDER
  3. LIPITOR [Concomitant]
     Indication: BLOOD CHOLESTEROL ABNORMAL
  4. FUROSEMIDE [Concomitant]
     Indication: CARDIAC DISORDER
  5. DILTIAZEM [Concomitant]
     Indication: CARDIAC DISORDER
  6. INSPRA [Concomitant]
     Indication: CARDIAC DISORDER
  7. ALLOPURINOL [Concomitant]
     Indication: CARDIAC DISORDER
  8. WARFARIN [Concomitant]
     Indication: CARDIAC DISORDER
  9. ZOLOFT [Concomitant]
     Indication: AFFECTIVE DISORDER
  10. DIGOXIN [Concomitant]
     Indication: CARDIOVASCULAR EVENT PROPHYLAXIS
  11. GABAPENTIN [Concomitant]
     Indication: ARTHRITIS
     Dosage: 300MG IN AM AND 600MG AT BEDTIME
  12. CELEBREX [Concomitant]
     Indication: ARTHRITIS
  13. FISH OIL [Concomitant]
  14. PRO-AIR [Concomitant]
     Indication: CHRONIC OBSTRUCTIVE PULMONARY DISEASE
  15. SYMBICORT [Concomitant]
     Indication: CHRONIC OBSTRUCTIVE PULMONARY DISEASE
  16. SPIRIVA [Concomitant]
     Indication: CHRONIC OBSTRUCTIVE PULMONARY DISEASE
     Dosage: 1 PUFF DAILY

REACTIONS (3)
  - Rash pruritic [Not Recovered/Not Resolved]
  - Rash erythematous [Not Recovered/Not Resolved]
  - Rash papular [Not Recovered/Not Resolved]
